FAERS Safety Report 7912914-6 (Version None)
Quarter: 2011Q4

REPORT INFORMATION
  Report Type: 
  Country: None (occurrence: None)
  Receive Date: 20111114
  Receipt Date: 20111027
  Transmission Date: 20120403
  Serious: Yes (Hospitalization)
  Sender: FDA-Public Use
  Company Number: CA-ROCHE-799437

PATIENT
  Sex: Female

DRUGS (12)
  1. AMLODIPINE [Concomitant]
  2. FUROSEMIDE [Concomitant]
  3. NOVOLIN 70/30 [Concomitant]
  4. OMEPRAZOLE [Concomitant]
  5. REPLAVITE [Concomitant]
  6. PREDNISOLONE [Suspect]
     Indication: IMMUNOSUPPRESSION
  7. MYCOPHENOLATE MOFETIL (CELLCEPT) [Suspect]
     Indication: IMMUNOSUPPRESSION
     Route: 065
  8. CALCIUM CARBONATE [Concomitant]
  9. VITAMIN D [Concomitant]
  10. CYCLOSPORINE [Suspect]
     Indication: IMMUNOSUPPRESSION
     Route: 048
     Dates: start: 20070226
  11. TOBRADEX [Concomitant]
  12. KETOROLAC TROMETHAMINE [Concomitant]

REACTIONS (3)
  - PERIPHERAL ISCHAEMIA [None]
  - LOCALISED INFECTION [None]
  - GANGRENE [None]
